FAERS Safety Report 5118623-3 (Version None)
Quarter: 2006Q4

REPORT INFORMATION
  Report Type: 
  Country: None (occurrence: None)
  Receive Date: 20061002
  Receipt Date: 20060825
  Transmission Date: 20070319
  Serious: Yes (Disabling)
  Sender: FDA-Public Use
  Company Number: JP-JPN-A200603333

PATIENT
  Age: 61 Year
  Sex: Female

DRUGS (3)
  1. FLUTIDE [Suspect]
     Indication: ASTHMA
     Dosage: 100MCG PER DAY
     Route: 055
     Dates: start: 20021009, end: 20060824
  2. SPIROPENT [Concomitant]
     Indication: ASTHMA
     Dosage: 2U PER DAY
     Route: 048
     Dates: start: 20060605
  3. THEO-DUR [Concomitant]
     Indication: ASTHMA
     Dosage: 100MG PER DAY
     Route: 048
     Dates: start: 20060605

REACTIONS (2)
  - HYPOAESTHESIA ORAL [None]
  - PAROSMIA [None]
